FAERS Safety Report 15566343 (Version 1)
Quarter: 2018Q4

REPORT INFORMATION
  Report Type: Spontaneous
  Country: JP (occurrence: JP)
  Receive Date: 20181030
  Receipt Date: 20181030
  Transmission Date: 20190205
  Serious: Yes (Other)
  Sender: FDA-Public Use
  Company Number: JP-PFIZER INC-2018435900

PATIENT

DRUGS (1)
  1. IBRANCE [Suspect]
     Active Substance: PALBOCICLIB
     Dosage: UNK

REACTIONS (5)
  - Decreased appetite [Unknown]
  - Second primary malignancy [Unknown]
  - Pancreatic carcinoma [Unknown]
  - Weight decreased [Unknown]
  - Pancreatic disorder [Unknown]
